FAERS Safety Report 7000525 (Version 3)
Quarter: 2020Q3

REPORT INFORMATION
  Report Type: Report from Study
  Country: US (occurrence: US)
  Receive Date: 20090522
  Receipt Date: 20100316
  Transmission Date: 20201104
  Serious: Yes (Hospitalization, Other)
  Sender: FDA-Public Use
  Company Number: US-ROCHE-633460

PATIENT
  Age: 92 Year
  Sex: Female

DRUGS (15)
  1. MICARDIS [Concomitant]
     Active Substance: TELMISARTAN
  2. BAYER ASPIRIN [Concomitant]
     Active Substance: ASPIRIN
     Dosage: 1?3 X A WEEK
  3. VITAMIN C [Concomitant]
     Active Substance: ASCORBIC ACID
  4. TRIAMCINOLONE [Concomitant]
     Active Substance: TRIAMCINOLONE
  5. OXYCODONE [Concomitant]
     Active Substance: OXYCODONE
     Indication: PAIN
     Dosage: DRUG: OXYCOD/APAP; 5.325 MG (1 EVERY 6 HOURS WHEN NEEDED)
  6. LANOXIN [Concomitant]
     Active Substance: DIGOXIN
  7. CALCIUM/VITAMIN D [Concomitant]
     Active Substance: CALCIUM\VITAMIN D
     Dosage: DRUG: CALICUM WITH VIT D
  8. VERAPAMIL HYDROCHLORIDE. [Concomitant]
     Active Substance: VERAPAMIL HYDROCHLORIDE
  9. ZETIA [Concomitant]
     Active Substance: EZETIMIBE
  10. CENTRUM SILVER [Concomitant]
     Active Substance: MINERALS\VITAMINS
  11. LORAZEPAM. [Concomitant]
     Active Substance: LORAZEPAM
     Dosage: DRUG: LORAZAPAM
  12. LIPITOR [Concomitant]
     Active Substance: ATORVASTATIN CALCIUM
  13. LEVOTHYROXINE. [Concomitant]
     Active Substance: LEVOTHYROXINE
  14. IBANDRONIC ACID. [Suspect]
     Active Substance: IBANDRONIC ACID
     Indication: OSTEOPOROSIS
     Dosage: PATIENT ON BONIVA FOR COUPLE OF YEARS
     Route: 048
  15. OSCAL D [Concomitant]
     Active Substance: CALCIUM CARBONATE\CHOLECALCIFEROL

REACTIONS (5)
  - Fatigue [Recovered/Resolved]
  - Transient ischaemic attack [Recovered/Resolved]
  - Loose tooth [Not Recovered/Not Resolved]
  - Hypoaesthesia [Recovered/Resolved]
  - Influenza like illness [Recovered/Resolved]

NARRATIVE: CASE EVENT DATE: 20040503
